FAERS Safety Report 9504864 (Version 1)
Quarter: 2013Q3

REPORT INFORMATION
  Report Type: Spontaneous
  Country: JP (occurrence: JP)
  Receive Date: 20130906
  Receipt Date: 20130906
  Transmission Date: 20140515
  Serious: Yes (Life-Threatening, Hospitalization)
  Sender: FDA-Public Use
  Company Number: JP-B.I. PHARMACEUTICALS,INC./RIDGEFIELD-2013-BI-27666NB

PATIENT
  Age: 70 Year
  Sex: Male

DRUGS (3)
  1. PRAZAXA [Suspect]
     Indication: CEREBROVASCULAR ACCIDENT PROPHYLAXIS
     Dosage: 300 MG
     Route: 048
  2. PLETAAL [Concomitant]
     Dosage: 200 MG
     Route: 048
  3. PLAVIX [Concomitant]
     Route: 048

REACTIONS (1)
  - Cerebral infarction [Recovered/Resolved]
